FAERS Safety Report 11375874 (Version 2)
Quarter: 2015Q3

REPORT INFORMATION
  Report Type: Spontaneous
  Country: TR (occurrence: TR)
  Receive Date: 20150813
  Receipt Date: 20150909
  Transmission Date: 20151125
  Serious: Yes (Death, Other)
  Sender: FDA-Public Use
  Company Number: TR-TEVA-585883ISR

PATIENT
  Sex: Female

DRUGS (4)
  1. CAPECITABINE. [Suspect]
     Active Substance: CAPECITABINE
     Route: 065
  2. GEMCITABINE [Suspect]
     Active Substance: GEMCITABINE\GEMCITABINE HYDROCHLORIDE
     Route: 065
  3. VINORELBINE [Suspect]
     Active Substance: VINORELBINE\VINORELBINE TARTRATE
     Route: 065
  4. CARBOPLATIN. [Suspect]
     Active Substance: CARBOPLATIN
     Route: 065

REACTIONS (6)
  - Breast cancer female [Fatal]
  - Duodenitis [Not Recovered/Not Resolved]
  - Hepatitis C [Unknown]
  - Oedema mucosal [Not Recovered/Not Resolved]
  - Metastases to lymph nodes [Fatal]
  - Metastases to liver [Fatal]

NARRATIVE: CASE EVENT DATE: 20150703
